FAERS Safety Report 15165895 (Version 1)
Quarter: 2018Q3

REPORT INFORMATION
  Report Type: Spontaneous
  Country: US (occurrence: US)
  Receive Date: 20180621
  Receipt Date: 20180621
  Transmission Date: 20181010
  Serious: No
  Sender: FDA-Public Use
  Company Number: None

PATIENT
  Age: 22 Year
  Sex: Male

DRUGS (1)
  1. DUPIXENT [Suspect]
     Active Substance: DUPILUMAB
     Dosage: ?          OTHER FREQUENCY:OTHER;?
     Route: 058

REACTIONS (3)
  - Pyrexia [None]
  - Chills [None]
  - Headache [None]

NARRATIVE: CASE EVENT DATE: 20180621
